FAERS Safety Report 15962443 (Version 1)
Quarter: 2019Q1

REPORT INFORMATION
  Report Type: Spontaneous
  Country: IT (occurrence: IT)
  Receive Date: 20190214
  Receipt Date: 20190214
  Transmission Date: 20190417
  Serious: Yes (Other)
  Sender: FDA-Public Use
  Company Number: IT-GILEAD-2019-0390715

PATIENT
  Age: 53 Year
  Sex: Female

DRUGS (4)
  1. STILNOX [Concomitant]
     Active Substance: ZOLPIDEM TARTRATE
  2. ATORVASTATIN [Concomitant]
     Active Substance: ATORVASTATIN
     Route: 048
  3. EPCLUSA [Suspect]
     Active Substance: SOFOSBUVIR\VELPATASVIR
     Indication: HEPATITIS C
     Route: 048
     Dates: start: 20181110, end: 20190202
  4. ASPIRIN CARDIO [Concomitant]
     Active Substance: ASPIRIN

REACTIONS (2)
  - Lymphadenitis [Not Recovered/Not Resolved]
  - Subcutaneous abscess [Not Recovered/Not Resolved]

NARRATIVE: CASE EVENT DATE: 20190203
